FAERS Safety Report 11448336 (Version 1)
Quarter: 2015Q3

REPORT INFORMATION
  Report Type: Spontaneous
  Country: US (occurrence: US)
  Receive Date: 20150831
  Receipt Date: 20150831
  Transmission Date: 20151125
  Serious: No
  Sender: FDA-Public Use
  Company Number: US-ELI_LILLY_AND_COMPANY-US200906007125

PATIENT
  Sex: Female

DRUGS (3)
  1. ARMODAFINIL. [Concomitant]
     Active Substance: ARMODAFINIL
  2. CYMBALTA [Suspect]
     Active Substance: DULOXETINE HYDROCHLORIDE
     Dosage: 60 MG, DAILY (1/D)
     Dates: start: 2005
  3. TRAMADOL. [Concomitant]
     Active Substance: TRAMADOL

REACTIONS (5)
  - Ill-defined disorder [Recovered/Resolved]
  - Sleep apnoea syndrome [Not Recovered/Not Resolved]
  - Somnambulism [Recovered/Resolved]
  - Feeling abnormal [Recovered/Resolved]
  - Knee arthroplasty [Recovered/Resolved]

NARRATIVE: CASE EVENT DATE: 200809
